FAERS Safety Report 10652595 (Version 1)
Quarter: 2014Q4

REPORT INFORMATION
  Report Type: Spontaneous
  Country: GB (occurrence: GB)
  Receive Date: 20141215
  Receipt Date: 20141215
  Transmission Date: 20150529
  Serious: Yes (Life-Threatening)
  Sender: FDA-Public Use
  Company Number: GB-GALEN LIMITED-AE-2014/0812

PATIENT
  Age: 58 Year
  Sex: Male

DRUGS (2)
  1. DAUNOXOME [Suspect]
     Active Substance: DAUNORUBICIN CITRATE
     Indication: KAPOSI^S SARCOMA AIDS RELATED
     Dates: start: 20111102, end: 20120118
  2. HAART [Concomitant]
     Route: 048
     Dates: start: 200101

REACTIONS (1)
  - Rectal cancer [Unknown]

NARRATIVE: CASE EVENT DATE: 20140429
